FAERS Safety Report 5928066-8 (Version None)
Quarter: 2008Q4

REPORT INFORMATION
  Report Type: 
  Country: None (occurrence: None)
  Receive Date: 20081023
  Receipt Date: 20081017
  Transmission Date: 20090506
  Serious: Yes (Hospitalization)
  Sender: FDA-Public Use
  Company Number: A0753276A

PATIENT
  Age: 55 Year
  Sex: Male
  Weight: 141.4 kg

DRUGS (4)
  1. AVANDIA [Suspect]
     Dosage: 8MG PER DAY
     Route: 048
     Dates: start: 19990101, end: 20070101
  2. AMARYL [Concomitant]
     Dates: start: 20000101
  3. GLUCOPHAGE [Concomitant]
     Dates: start: 20000101
  4. BYETTA [Concomitant]
     Dates: start: 20060101

REACTIONS (1)
  - MYOCARDIAL INFARCTION [None]
